FAERS Safety Report 4501384-6 (Version None)
Quarter: 2004Q4

REPORT INFORMATION
  Report Type: 
  Country: None (occurrence: None)
  Receive Date: 20041110
  Receipt Date: 20041101
  Transmission Date: 20050328
  Serious: Yes (Hospitalization)
  Sender: FDA-Public Use
  Company Number: 2004240747US

PATIENT
  Age: 71 Year
  Sex: Female

DRUGS (10)
  1. BEXTRA [Suspect]
     Indication: OSTEOARTHRITIS
     Dosage: 20 MG, QD
     Dates: start: 20040101, end: 20040101
  2. LASIX [Concomitant]
  3. AVAPRO [Concomitant]
  4. AMARYL [Concomitant]
  5. ECOTRIN [Concomitant]
  6. ATIVAN [Concomitant]
  7. COMBIVENT [Concomitant]
  8. LORTAB [Concomitant]
  9. ALLOPURINOL [Concomitant]
  10. ISORDIL [Concomitant]

REACTIONS (1)
  - STEVENS-JOHNSON SYNDROME [None]
